FAERS Safety Report 8996906 (Version 1)
Quarter: 2013Q1

REPORT INFORMATION
  Report Type: Spontaneous
  Country: JP (occurrence: JP)
  Receive Date: 20130104
  Receipt Date: 20130104
  Transmission Date: 20140127
  Serious: Yes (Death, Other)
  Sender: FDA-Public Use
  Company Number: JP-BAYER-2012-135389

PATIENT
  Age: 6 Year
  Sex: Male

DRUGS (17)
  1. FLUDARABINE PHOSPHATE [Suspect]
     Indication: ACUTE MONOCYTIC LEUKAEMIA
     Dosage: 25 MG/M2, QD, FOR DAY 1-5
     Route: 065
  2. FLUDARABINE PHOSPHATE [Suspect]
     Indication: ACUTE MONOCYTIC LEUKAEMIA
     Dosage: 30 MG/M2, QD (ON DAY 245 POST 1ST HSCT)
     Route: 065
  3. FLUDARABINE PHOSPHATE [Suspect]
     Indication: ACUTE MONOCYTIC LEUKAEMIA
     Dosage: 30 MG/M2, QID (FOR DAYS -8 APPROX. -5 BEFORE 2ND TRANSPLANTATION)
     Route: 065
  4. SORAFENIB (RAF KINASE INHIBITOR) [Suspect]
     Dosage: 200 MG/M2, QD
     Route: 048
  5. SORAFENIB (RAF KINASE INHIBITOR) [Suspect]
     Dosage: 300 MG, QD
     Route: 048
  6. SORAFENIB (RAF KINASE INHIBITOR) [Suspect]
     Dosage: 150 MG, QOD
     Route: 048
  7. SORAFENIB (RAF KINASE INHIBITOR) [Suspect]
     Dosage: 250 MG, QOD
     Route: 048
  8. CYTARABINE [Concomitant]
  9. IDARUBICIN [Concomitant]
  10. GEMTUZUMAB OZOGAMICIN [Concomitant]
  11. ETOPOSIDE [Concomitant]
  12. CYCLOPHOSPHAMIDE [Concomitant]
  13. METHOTREXATE [Concomitant]
  14. MITOXANTRONE [Concomitant]
  15. G-CSF [Concomitant]
  16. BUSULFAN [Concomitant]
  17. MELPHALAN [Concomitant]

REACTIONS (8)
  - Respiratory failure [Fatal]
  - Acute graft versus host disease [Not Recovered/Not Resolved]
  - Cardiac failure acute [None]
  - Alanine aminotransferase increased [None]
  - Aspartate aminotransferase increased [None]
  - Renal failure acute [None]
  - Pulmonary haemorrhage [None]
  - Palmar-plantar erythrodysaesthesia syndrome [None]
